APPROVED DRUG PRODUCT: AUGMENTIN XR
Active Ingredient: AMOXICILLIN; CLAVULANATE POTASSIUM
Strength: 1GM;EQ 62.5MG BASE **Federal Register determination that product was not discontinued or withdrawn for safety or effectiveness reasons**
Dosage Form/Route: TABLET, EXTENDED RELEASE;ORAL
Application: N050785 | Product #001 | TE Code: AB
Applicant: US ANTIBIOTICS LLC
Approved: Sep 25, 2002 | RLD: Yes | RS: No | Type: RX